FAERS Safety Report 15101108 (Version 2)
Quarter: 2019Q4

REPORT INFORMATION
  Report Type: Spontaneous
  Country: GB (occurrence: GB)
  Receive Date: 20180703
  Receipt Date: 20191126
  Transmission Date: 20200122
  Serious: Yes (Hospitalization, Disabling)
  Sender: FDA-Public Use
  Company Number: GB-VIVIMED-2018SP005430

PATIENT
  Age: 93 Year
  Sex: Female

DRUGS (3)
  1. DOCUSATE SODIUM. [Concomitant]
     Active Substance: DOCUSATE SODIUM
     Indication: PRODUCT USED FOR UNKNOWN INDICATION
     Dosage: UNK
     Route: 065
  2. DONEPEZIL. [Suspect]
     Active Substance: DONEPEZIL
     Indication: DEMENTIA ALZHEIMER^S TYPE
     Dosage: 5 MILLIGRAM
     Route: 065
  3. DONEPEZIL. [Suspect]
     Active Substance: DONEPEZIL
     Dosage: INCREASED TO 10 MILLIGRAM, DAILY
     Route: 065

REACTIONS (3)
  - Myoclonus [Recovered/Resolved]
  - Dyskinesia [Recovered/Resolved]
  - Gait inability [Recovered/Resolved]
